FAERS Safety Report 9321717 (Version 1)
Quarter: 2013Q2

REPORT INFORMATION
  Report Type: Spontaneous
  Country: DE (occurrence: DE)
  Receive Date: 20130531
  Receipt Date: 20130531
  Transmission Date: 20140414
  Serious: Yes (Other)
  Sender: FDA-Public Use
  Company Number: DE-CUBIST PHARMACEUTICAL, INC.-2013CBST000421

PATIENT
  Sex: 0

DRUGS (2)
  1. CUBICIN [Suspect]
     Indication: STAPHYLOCOCCAL INFECTION
     Dosage: 6 MG/KG, UNK
     Route: 065
  2. CUBICIN [Suspect]
     Dosage: 4 MG/KG, Q48H
     Route: 065

REACTIONS (3)
  - Gamma-glutamyltransferase increased [Not Recovered/Not Resolved]
  - Liver function test abnormal [Not Recovered/Not Resolved]
  - Renal function test abnormal [Not Recovered/Not Resolved]
